FAERS Safety Report 22951806 (Version 3)
Quarter: 2023Q4

REPORT INFORMATION
  Report Type: Spontaneous
  Country: GR (occurrence: GR)
  Receive Date: 20230918
  Receipt Date: 20231027
  Transmission Date: 20240110
  Serious: Yes (Other)
  Sender: FDA-Public Use
  Company Number: GR-MYLANLABS-2023M1096257

PATIENT
  Age: 73 Year
  Sex: Male

DRUGS (3)
  1. EMPAGLIFLOZIN [Suspect]
     Active Substance: EMPAGLIFLOZIN
     Indication: Type 2 diabetes mellitus
     Dosage: 25 MILLIGRAM, QD
  2. EMPAGLIFLOZIN [Suspect]
     Active Substance: EMPAGLIFLOZIN
     Indication: Type 2 diabetes mellitus
  3. METFORMIN\VILDAGLIPTIN [Suspect]
     Active Substance: METFORMIN\VILDAGLIPTIN
     Indication: Type 2 diabetes mellitus
     Dosage: 2 DOSAGE FORM ?1 DOSAGE FORM, (850/50 MG ? 2)

REACTIONS (4)
  - Euglycaemic diabetic ketoacidosis [Recovered/Resolved]
  - Polyuria [Unknown]
  - Blood pressure decreased [Unknown]
  - Tachycardia [Unknown]
